FAERS Safety Report 18107284 (Version 1)
Quarter: 2020Q3

REPORT INFORMATION
  Report Type: Spontaneous
  Country: US (occurrence: US)
  Receive Date: 20200804
  Receipt Date: 20200804
  Transmission Date: 20201103
  Serious: No
  Sender: FDA-Public Use
  Company Number: US-MYLANLABS-2020M1068617

PATIENT
  Sex: Male

DRUGS (1)
  1. TRAMADOL. [Suspect]
     Active Substance: TRAMADOL
     Indication: PRODUCT USED FOR UNKNOWN INDICATION
     Dosage: UNK

REACTIONS (8)
  - Constipation [Unknown]
  - Rotator cuff syndrome [Unknown]
  - Lower limb fracture [Unknown]
  - Fall [Unknown]
  - Spinal stenosis [Unknown]
  - Gait inability [Unknown]
  - Drug ineffective [Unknown]
  - Extremity contracture [Unknown]
